FAERS Safety Report 7579310-5 (Version None)
Quarter: 2011Q2

REPORT INFORMATION
  Report Type: 
  Country: None (occurrence: None)
  Receive Date: 20110628
  Receipt Date: 20110601
  Transmission Date: 20111010
  Serious: No
  Sender: FDA-Public Use
  Company Number: US-BAYER-2011-047784

PATIENT
  Age: 70 Year
  Sex: Female
  Weight: 57.143 kg

DRUGS (4)
  1. ALEVE (CAPLET) [Suspect]
     Indication: ANALGESIC THERAPY
     Dosage: 2 DF, ONCE
     Route: 048
  2. OMEPRAZOLE [Concomitant]
  3. CARTIA XT [Concomitant]
     Dosage: UNK
  4. WELCHOL [Concomitant]

REACTIONS (1)
  - PRURITUS [None]
